FAERS Safety Report 12534551 (Version 1)
Quarter: 2016Q3

REPORT INFORMATION
  Report Type: Report from Study
  Country: US (occurrence: US)
  Receive Date: 20160706
  Receipt Date: 20160706
  Transmission Date: 20161109
  Serious: Yes (Other)
  Sender: FDA-Public Use
  Company Number: US-ABBVIE-16P-163-1669629-00

PATIENT
  Age: 52 Year
  Sex: Male

DRUGS (1)
  1. VIEKIRA PAK [Suspect]
     Active Substance: DASABUVIR\OMBITASVIR\PARITAPREVIR\RITONAVIR
     Indication: CHRONIC HEPATITIS C
     Route: 048
     Dates: start: 20151015, end: 20160111

REACTIONS (12)
  - Diarrhoea [Unknown]
  - Asthenia [Unknown]
  - Blindness [Unknown]
  - Bronchitis [Unknown]
  - Upper-airway cough syndrome [Unknown]
  - Abdominal distension [Unknown]
  - Hypoglycaemia [Unknown]
  - Decreased appetite [Unknown]
  - Wheezing [Unknown]
  - Sinusitis [Unknown]
  - Pyrexia [Unknown]
  - Abdominal pain [Unknown]

NARRATIVE: CASE EVENT DATE: 20151021
